FAERS Safety Report 5086644-5 (Version None)
Quarter: 2006Q3

REPORT INFORMATION
  Report Type: 
  Country: None (occurrence: None)
  Receive Date: 20060818
  Receipt Date: 20060804
  Transmission Date: 20061208
  Serious: Yes (Death)
  Sender: FDA-Public Use
  Company Number: PHO 2006-026

PATIENT
  Age: 67 Year
  Sex: Male

DRUGS (1)
  1. PHOTOFRIN [Suspect]
     Indication: OESOPHAGEAL CARCINOMA
     Dosage: 110 MG (2 MG/KG) INTRAVENOUS
     Route: 042
     Dates: start: 20060530

REACTIONS (7)
  - AORTIC INJURY [None]
  - AORTIC RUPTURE [None]
  - GASTROINTESTINAL NECROSIS [None]
  - HAEMATEMESIS [None]
  - OEDEMA MUCOSAL [None]
  - OESOPHAGEAL ULCER [None]
  - PYREXIA [None]
